FAERS Safety Report 10349642 (Version 3)
Quarter: 2014Q4

REPORT INFORMATION
  Report Type: Spontaneous
  Country: US (occurrence: US)
  Receive Date: 20140730
  Receipt Date: 20141119
  Transmission Date: 20150528
  Serious: Yes (Other)
  Sender: FDA-Public Use
  Company Number: US-SA-2014SA101003

PATIENT
  Sex: Male
  Weight: 1.21 kg

DRUGS (2)
  1. FABRAZYME [Suspect]
     Active Substance: AGALSIDASE BETA
     Indication: EXPOSURE DURING BREAST FEEDING
     Route: 064
  2. FABRAZYME [Suspect]
     Active Substance: AGALSIDASE BETA
     Indication: FOETAL EXPOSURE TIMING UNSPECIFIED
     Route: 064

REACTIONS (14)
  - Apnoea [Not Recovered/Not Resolved]
  - Hyperbilirubinaemia [Recovered/Resolved]
  - Bradycardia [Not Recovered/Not Resolved]
  - Yellow skin [Not Recovered/Not Resolved]
  - Sepsis [Recovered/Resolved]
  - Intraventricular haemorrhage [Not Recovered/Not Resolved]
  - Failure to thrive [Recovered/Resolved]
  - Cerebral haemorrhage [Not Recovered/Not Resolved]
  - Retinopathy [Recovered/Resolved]
  - Transfusion [Recovered/Resolved]
  - Premature baby [Recovered/Resolved]
  - Exposure during breast feeding [Unknown]
  - Anaemia [Not Recovered/Not Resolved]
  - Respiratory distress [Recovered/Resolved]

NARRATIVE: CASE EVENT DATE: 20100221
